FAERS Safety Report 6552476-1 (Version None)
Quarter: 2010Q1

REPORT INFORMATION
  Report Type: 
  Country: None (occurrence: None)
  Receive Date: 20100126
  Receipt Date: 20090207
  Transmission Date: 20100710
  Serious: Yes (Other)
  Sender: FDA-Public Use
  Company Number: US-PFIZER INC-2009159451

PATIENT
  Sex: Female
  Weight: 77.098 kg

DRUGS (12)
  1. GEODON [Suspect]
     Indication: BIPOLAR DISORDER
     Dosage: 80 MG, 2X/DAY
     Route: 048
     Dates: start: 20090104
  2. AMLODIPINE BESYLATE [Suspect]
  3. ATENOLOL [Suspect]
  4. TELMISARTAN [Suspect]
  5. LITHIUM CARBONATE [Suspect]
  6. ANTIHYPERTENSIVES [Concomitant]
     Dosage: UNK
  7. CHOLESTEROL- AND TRIGLYCERIDE REDUCERS [Concomitant]
     Dosage: UNK
  8. LEVOTHYROXINE SODIUM [Concomitant]
     Dosage: UNK
  9. SINGULAIR [Concomitant]
     Dosage: UNK
  10. FERROUS SULFATE TAB [Concomitant]
     Dosage: UNK
  11. METFORMIN HYDROCHLORIDE [Concomitant]
     Dosage: UNK
  12. ALLEGRA [Concomitant]
     Dosage: UNK

REACTIONS (6)
  - BLOOD CREATININE INCREASED [None]
  - DRY MOUTH [None]
  - ILL-DEFINED DISORDER [None]
  - LOSS OF CONSCIOUSNESS [None]
  - NAUSEA [None]
  - SYNCOPE [None]
